FAERS Safety Report 7188936-2 (Version None)
Quarter: 2010Q4

REPORT INFORMATION
  Report Type: 
  Country: None (occurrence: None)
  Receive Date: 20101222
  Receipt Date: 20100729
  Transmission Date: 20110411
  Serious: No
  Sender: FDA-Public Use
  Company Number: US-AMGEN-KDL427942

PATIENT

DRUGS (9)
  1. ENBREL [Suspect]
     Indication: PSORIASIS
  2. ENBREL [Suspect]
     Indication: RHEUMATOID ARTHRITIS
  3. ADALIMUMAB [Concomitant]
     Dosage: 40 MG, Q2WK
  4. SIMVASTATIN [Concomitant]
  5. LISINOPRIL [Concomitant]
  6. METOPROLOL [Concomitant]
  7. MELOXICAM [Concomitant]
  8. FISH OIL [Concomitant]
  9. METFORMIN [Concomitant]

REACTIONS (1)
  - INJECTION SITE REACTION [None]
